FAERS Safety Report 7656977-4 (Version None)
Quarter: 2011Q3

REPORT INFORMATION
  Report Type: 
  Country: None (occurrence: None)
  Receive Date: 20110804
  Receipt Date: 20110725
  Transmission Date: 20111222
  Serious: Yes (Death)
  Sender: FDA-Public Use
  Company Number: US-ABBOTT-07P-163-0359507-02

PATIENT
  Sex: Female

DRUGS (13)
  1. PREDNISONE [Concomitant]
     Indication: RHEUMATOID ARTHRITIS
     Route: 048
     Dates: start: 20030426, end: 20070208
  2. HUMIRA [Suspect]
     Indication: RHEUMATOID ARTHRITIS
     Route: 058
     Dates: start: 20001010, end: 20061010
  3. CYTOTEC [Concomitant]
     Indication: PROPHYLAXIS AGAINST GASTROINTESTINAL ULCER
     Route: 048
     Dates: start: 19900101, end: 20070208
  4. CHLOR-TRIMETON [Concomitant]
     Indication: SEASONAL ALLERGY
     Route: 048
     Dates: start: 19990111, end: 20070208
  5. SYNTHROID [Concomitant]
     Indication: HYPOTHYROIDISM
     Route: 048
     Dates: start: 19890101, end: 20070208
  6. PSEUDOEPHEDRINE HCL [Concomitant]
     Indication: UPPER-AIRWAY COUGH SYNDROME
     Route: 048
     Dates: start: 20001006, end: 20070208
  7. AMBIEN [Concomitant]
     Indication: INSOMNIA
     Route: 048
     Dates: start: 19990101, end: 20070208
  8. DARVOCET [Concomitant]
     Indication: RHEUMATOID ARTHRITIS
     Dosage: 1 - 3 TABLETS
     Dates: start: 19990101, end: 20070208
  9. METHOTREXATE [Concomitant]
     Indication: RHEUMATOID ARTHRITIS
     Route: 030
     Dates: start: 19981104, end: 20070108
  10. FOLIC ACID [Concomitant]
     Indication: VITAMIN SUPPLEMENTATION
     Route: 048
     Dates: start: 19900501, end: 20070208
  11. ARTIFICIAL TEARS [Concomitant]
     Indication: DRY EYE
     Dosage: 1 - 2 DROPS
     Route: 047
     Dates: start: 19940101, end: 20070208
  12. ASPIRIN [Concomitant]
     Indication: PAIN IN EXTREMITY
     Route: 048
     Dates: start: 20000707, end: 20070208
  13. ASPIRIN [Concomitant]
     Indication: PROPHYLAXIS
     Route: 048
     Dates: start: 20000125, end: 20070208

REACTIONS (1)
  - DEATH [None]
